FAERS Safety Report 4391411-1 (Version None)
Quarter: 2004Q3

REPORT INFORMATION
  Report Type: 
  Country: None (occurrence: None)
  Receive Date: 20040707
  Receipt Date: 20030922
  Transmission Date: 20050211
  Serious: Yes (Disabling)
  Sender: FDA-Public Use
  Company Number: US-GLAXOSMITHKLINE-A0427378A

PATIENT
  Sex: Female

DRUGS (1)
  1. PAXIL [Suspect]
     Indication: ILL-DEFINED DISORDER
     Route: 048
     Dates: start: 20020401, end: 20030301

REACTIONS (11)
  - ABORTION SPONTANEOUS [None]
  - ADVERSE EVENT [None]
  - ARTHRALGIA [None]
  - ASTHENIA [None]
  - BLOOD DISORDER [None]
  - DEHYDRATION [None]
  - DIARRHOEA [None]
  - DISTURBANCE IN ATTENTION [None]
  - LOSS OF LIBIDO [None]
  - MUSCLE CRAMP [None]
  - WEIGHT INCREASED [None]
